FAERS Safety Report 19918360 (Version 1)
Quarter: 2021Q4

REPORT INFORMATION
  Report Type: Spontaneous
  Country: US (occurrence: US)
  Receive Date: 20211005
  Receipt Date: 20211005
  Transmission Date: 20220303
  Serious: Yes (Death, Life-Threatening, Hospitalization)
  Sender: FDA-Public Use
  Company Number: US-MYLANLABS-2021M1068114

PATIENT
  Age: 72 Year
  Sex: Female

DRUGS (2)
  1. PREDNISONE [Suspect]
     Active Substance: PREDNISONE
     Indication: Acquired haemophilia
     Dosage: UNK
     Route: 065
  2. CYCLOPHOSPHAMIDE [Suspect]
     Active Substance: CYCLOPHOSPHAMIDE
     Indication: Acquired haemophilia
     Dosage: UNK
     Route: 065

REACTIONS (13)
  - Strongyloidiasis [Fatal]
  - Ventricular fibrillation [Unknown]
  - Torsade de pointes [Unknown]
  - Sepsis [Unknown]
  - Respiratory failure [Unknown]
  - Acute respiratory distress syndrome [Unknown]
  - Pneumonia [Unknown]
  - Morganella infection [Unknown]
  - Streptococcal infection [Unknown]
  - Granulicatella infection [Unknown]
  - Enterococcal infection [Unknown]
  - Citrobacter infection [Unknown]
  - Bacteraemia [Unknown]
